FAERS Safety Report 8317771 (Version 15)
Quarter: 2014Q2

REPORT INFORMATION
  Report Type: Spontaneous
  Country: CA (occurrence: CA)
  Receive Date: 20120102
  Receipt Date: 20140513
  Transmission Date: 20141212
  Serious: Yes (Other)
  Sender: FDA-Public Use
  Company Number: CA-ROCHE-1025340

PATIENT
  Age: 52 Year
  Sex: Male

DRUGS (10)
  1. XOLAIR [Suspect]
     Indication: ASTHMA
     Route: 058
     Dates: start: 20101027
  2. XOLAIR [Suspect]
     Route: 058
     Dates: start: 20130128
  3. XOLAIR [Suspect]
     Route: 058
     Dates: start: 20130423
  4. XOLAIR [Suspect]
     Route: 065
     Dates: start: 20130828
  5. XOLAIR [Suspect]
     Route: 058
     Dates: start: 20140507
  6. SYMBICORT [Concomitant]
  7. ALVESCO [Concomitant]
  8. SINGULAIR [Concomitant]
  9. NEXIUM [Concomitant]
  10. NASONEX [Concomitant]

REACTIONS (20)
  - Pharyngeal oedema [Unknown]
  - Throat irritation [Unknown]
  - Nasopharyngitis [Unknown]
  - Sinus congestion [Unknown]
  - Viral infection [Unknown]
  - Body temperature decreased [Unknown]
  - Wheezing [Recovering/Resolving]
  - Ear disorder [Unknown]
  - Nasal congestion [Unknown]
  - Rales [Unknown]
  - Productive cough [Unknown]
  - Breath sounds abnormal [Unknown]
  - Bronchitis [Unknown]
  - Ear infection [Unknown]
  - Musculoskeletal stiffness [Unknown]
  - Nasal polyps [Unknown]
  - Chest discomfort [Recovered/Resolved]
  - Cough [Recovered/Resolved]
  - Respiratory disorder [Unknown]
  - Blood pressure decreased [Unknown]
